FAERS Safety Report 11727762 (Version 1)
Quarter: 2015Q4

REPORT INFORMATION
  Report Type: Spontaneous
  Country: US (occurrence: US)
  Receive Date: 20151110
  Receipt Date: 20151110
  Transmission Date: 20160304
  Serious: No
  Sender: FDA-Public Use
  Company Number: US-ELI_LILLY_AND_COMPANY-US201111005136

PATIENT
  Sex: Female

DRUGS (1)
  1. FORTEO [Suspect]
     Active Substance: TERIPARATIDE
     Dosage: UNK
     Route: 065
     Dates: start: 201109, end: 201111

REACTIONS (5)
  - Hypokinesia [Unknown]
  - Gait disturbance [Unknown]
  - Intentional product misuse [Unknown]
  - Back pain [Unknown]
  - Arthralgia [Unknown]
